FAERS Safety Report 9371236 (Version 2)
Quarter: 2013Q3

REPORT INFORMATION
  Report Type: Report from Study
  Country: CA (occurrence: CA)
  Receive Date: 20130627
  Receipt Date: 20130827
  Transmission Date: 20140515
  Serious: Yes (Other)
  Sender: FDA-Public Use
  Company Number: CA-ROCHE-1241754

PATIENT
  Age: 63 Year
  Sex: Female
  Weight: 65.8 kg

DRUGS (5)
  1. HERCEPTIN [Suspect]
     Indication: BREAST CANCER
     Route: 042
     Dates: start: 2006, end: 2010
  2. XELODA [Suspect]
     Indication: BREAST CANCER
     Route: 065
     Dates: start: 2013
  3. NAVELBINE [Suspect]
     Indication: BREAST CANCER
     Route: 065
     Dates: start: 2006, end: 2010
  4. DECADRON [Suspect]
     Indication: PRODUCT USED FOR UNKNOWN INDICATION
     Route: 065
  5. PANTOLOC [Concomitant]

REACTIONS (5)
  - Recurrent cancer [Not Recovered/Not Resolved]
  - Full blood count decreased [Recovered/Resolved]
  - Central nervous system lesion [Unknown]
  - Nausea [Not Recovered/Not Resolved]
  - Vomiting [Not Recovered/Not Resolved]
